FAERS Safety Report 14618522 (Version 1)
Quarter: 2018Q1

REPORT INFORMATION
  Report Type: Spontaneous
  Country: FR (occurrence: FR)
  Receive Date: 20180309
  Receipt Date: 20180309
  Transmission Date: 20180509
  Serious: Yes (Hospitalization, Other)
  Sender: FDA-Public Use
  Company Number: FR-TEVA-2018-FR-865113

PATIENT
  Age: 19 Year
  Sex: Female
  Weight: 58.8 kg

DRUGS (2)
  1. STRESAM [Suspect]
     Active Substance: ETIFOXINE
     Indication: INSOMNIA
     Dosage: 2 DOSAGE FORMS DAILY;
     Route: 048
     Dates: start: 20180111, end: 20180223
  2. LEELOO [Suspect]
     Active Substance: ETHINYL ESTRADIOL\LEVONORGESTREL
     Indication: CONTRACEPTION
     Route: 048
     Dates: start: 201704, end: 20180215

REACTIONS (1)
  - Hepatitis [Recovering/Resolving]

NARRATIVE: CASE EVENT DATE: 20180214
